FAERS Safety Report 12224749 (Version 1)
Quarter: 2016Q1

REPORT INFORMATION
  Report Type: Spontaneous
  Country: GB (occurrence: GB)
  Receive Date: 20160331
  Receipt Date: 20160331
  Transmission Date: 20160526
  Serious: Yes (Other)
  Sender: FDA-Public Use
  Company Number: GB-AUROBINDO-AUR-APL-2016-03975

PATIENT
  Age: 20 Year
  Sex: Female

DRUGS (2)
  1. DIANETTE [Concomitant]
     Active Substance: CYPROTERONE ACETATE\ETHINYL ESTRADIOL
     Indication: PRODUCT USED FOR UNKNOWN INDICATION
     Route: 065
  2. LAMOTRIGINE 100MG [Suspect]
     Active Substance: LAMOTRIGINE
     Indication: SEIZURE
     Dosage: 100 MG, ONCE A DAY
     Route: 048
     Dates: start: 201509, end: 201512

REACTIONS (1)
  - Eyelid bleeding [Recovered/Resolved]

NARRATIVE: CASE EVENT DATE: 201509
